FAERS Safety Report 5608562-3 (Version None)
Quarter: 2008Q1

REPORT INFORMATION
  Report Type: 
  Country: None (occurrence: None)
  Receive Date: 20080125
  Receipt Date: 20080108
  Transmission Date: 20080703
  Serious: Yes (Death)
  Sender: FDA-Public Use
  Company Number: DSA_31314_2008

PATIENT
  Age: 48 Year
  Sex: Male

DRUGS (6)
  1. LORAZEPAM [Suspect]
     Indication: DRUG USE FOR UNKNOWN INDICATION
     Dosage: (DF)
  2. ACETAMINOPHEN W/ CODEINE [Suspect]
     Indication: ANKLE FRACTURE
     Dosage: (30MG AND 60 MG CODEINE)
  3. SERTRALINE [Suspect]
     Dosage: (DF)
  4. BISACODYL [Concomitant]
  5. MORPHINE [Concomitant]
  6. CLONAZEPAM [Concomitant]

REACTIONS (6)
  - ARTERIOSCLEROSIS CORONARY ARTERY [None]
  - BRONCHOPNEUMONIA [None]
  - DRUG LEVEL ABOVE THERAPEUTIC [None]
  - DRUG TOXICITY [None]
  - PULMONARY OEDEMA [None]
  - SEROTONIN SYNDROME [None]
